FAERS Safety Report 6626265-3 (Version None)
Quarter: 2010Q1

REPORT INFORMATION
  Report Type: 
  Country: None (occurrence: None)
  Receive Date: 20100309
  Receipt Date: 20100309
  Transmission Date: 20100710
  Serious: Yes (Life-Threatening)
  Sender: FDA-Public Use
  Company Number: None

PATIENT
  Age: 54 Year
  Sex: Female
  Weight: 64.4108 kg

DRUGS (1)
  1. LEVAQUIN [Suspect]
     Indication: BRONCHITIS
     Dosage: 1 DAILY PO
     Route: 048
     Dates: start: 20100225, end: 20100228

REACTIONS (3)
  - DYSPHAGIA [None]
  - DYSPNOEA [None]
  - PHARYNGEAL OEDEMA [None]
